FAERS Safety Report 8003556-5 (Version None)
Quarter: 2011Q4

REPORT INFORMATION
  Report Type: 
  Country: None (occurrence: None)
  Receive Date: 20111222
  Receipt Date: 20111213
  Transmission Date: 20120403
  Serious: Yes (Hospitalization)
  Sender: FDA-Public Use
  Company Number: GB-JNJFOC-20111206291

PATIENT
  Age: 75 Year
  Sex: Female

DRUGS (17)
  1. AMITRIPTYLINE HCL [Concomitant]
  2. FOSAMAX [Concomitant]
  3. RAMIPRIL [Concomitant]
  4. REMICADE [Suspect]
     Indication: RHEUMATOID ARTHRITIS
     Route: 042
     Dates: start: 20041021
  5. BISOPROLOL FUMARATE [Suspect]
     Dates: start: 20110928
  6. METHOTREXATE [Concomitant]
  7. VITAMIN D [Concomitant]
  8. ASPIRIN [Concomitant]
     Dates: start: 20110701
  9. BISOPROLOL FUMARATE [Suspect]
     Indication: ATRIAL FIBRILLATION
     Dates: start: 20110701, end: 20110928
  10. FERROUS SULFATE TAB [Concomitant]
  11. CALCIUM CARBONATE [Concomitant]
  12. FOLIC ACID [Concomitant]
  13. DILTIAZEM HCL [Suspect]
     Indication: HYPERTENSION
     Dates: end: 20110928
  14. CELEBREX [Concomitant]
  15. HYPROMELLOSE [Concomitant]
  16. FUROSEMIDE [Concomitant]
  17. OXYTETRACYCLINE [Concomitant]

REACTIONS (2)
  - BRADYCARDIA [None]
  - ATRIAL FIBRILLATION [None]
